FAERS Safety Report 4995666-1 (Version None)
Quarter: 2006Q2

REPORT INFORMATION
  Report Type: 
  Country: None (occurrence: None)
  Receive Date: 20060504
  Receipt Date: 20060421
  Transmission Date: 20061013
  Serious: Yes (Hospitalization)
  Sender: FDA-Public Use
  Company Number: CIP06000890

PATIENT
  Age: 81 Year
  Sex: Male

DRUGS (1)
  1. ACTONEL [Suspect]
     Dosage: ORAL
     Route: 048
     Dates: start: 20051201

REACTIONS (7)
  - ARTHRALGIA [None]
  - DISCOMFORT [None]
  - FLUID RETENTION [None]
  - OEDEMA PERIPHERAL [None]
  - PAIN IN EXTREMITY [None]
  - SHOULDER PAIN [None]
  - SLEEP DISORDER [None]
